FAERS Safety Report 5620695-4 (Version None)
Quarter: 2008Q1

REPORT INFORMATION
  Report Type: 
  Country: None (occurrence: None)
  Receive Date: 20080208
  Receipt Date: 20080129
  Transmission Date: 20080703
  Serious: Yes (Life-Threatening, Hospitalization)
  Sender: FDA-Public Use
  Company Number: RO-ABBOTT-08P-135-0435604-00

PATIENT
  Sex: Female

DRUGS (10)
  1. KALETRA [Suspect]
     Indication: HIV INFECTION
     Route: 048
     Dates: start: 20070401, end: 20080101
  2. KALETRA [Suspect]
     Indication: ACQUIRED IMMUNODEFICIENCY SYNDROME
  3. STAVUDINE [Suspect]
     Indication: HIV INFECTION
     Route: 048
     Dates: start: 20070401, end: 20080101
  4. STAVUDINE [Suspect]
     Indication: ACQUIRED IMMUNODEFICIENCY SYNDROME
  5. HIDRAZIDE [Concomitant]
     Indication: TUBERCULOSIS
     Dates: start: 20060201, end: 20080108
  6. ETHAMBUTOL HYDROCHLORIDE [Concomitant]
     Indication: TUBERCULOSIS
     Dates: start: 20060201, end: 20080108
  7. PIRAZINAMIDE [Concomitant]
     Indication: TUBERCULOSIS
     Dates: start: 20060201, end: 20080108
  8. CIPROFLOXACIN HCL [Concomitant]
     Indication: TUBERCULOSIS
     Dates: start: 20060201, end: 20080108
  9. STAVUDINE [Concomitant]
     Dates: start: 20070401, end: 20080108
  10. STAVUDINE [Concomitant]

REACTIONS (3)
  - GENERAL PHYSICAL HEALTH DETERIORATION [None]
  - HEADACHE [None]
  - PANCREATITIS ACUTE [None]
